FAERS Safety Report 22162206 (Version 1)
Quarter: 2023Q1

REPORT INFORMATION
  Report Type: Spontaneous
  Country: FR (occurrence: FR)
  Receive Date: 20230331
  Receipt Date: 20230331
  Transmission Date: 20230417
  Serious: Yes (Other)
  Sender: FDA-Public Use
  Company Number: None

PATIENT
  Age: 62 Year
  Sex: Male
  Weight: 94 kg

DRUGS (4)
  1. KEYTRUDA [Suspect]
     Active Substance: PEMBROLIZUMAB
     Indication: Bronchial carcinoma
     Dosage: C1
     Route: 042
     Dates: start: 20220712
  2. ALIMTA [Suspect]
     Active Substance: PEMETREXED DISODIUM
     Indication: Bronchial carcinoma
     Dosage: C1
     Route: 042
     Dates: start: 20220712
  3. CISPLATIN [Concomitant]
     Active Substance: CISPLATIN
     Indication: Bronchial carcinoma
     Dosage: C2
     Route: 042
     Dates: start: 20220712, end: 20220802
  4. CARBOPLATIN [Concomitant]
     Active Substance: CARBOPLATIN
     Indication: Bronchial carcinoma
     Dosage: C2
     Route: 042
     Dates: start: 20220829, end: 20220926

REACTIONS (1)
  - Renal failure [Not Recovered/Not Resolved]

NARRATIVE: CASE EVENT DATE: 20220801
